FAERS Safety Report 14416801 (Version 1)
Quarter: 2018Q1

REPORT INFORMATION
  Report Type: Spontaneous
  Country: US (occurrence: US)
  Receive Date: 20180122
  Receipt Date: 20180122
  Transmission Date: 20180509
  Serious: No
  Sender: FDA-Public Use
  Company Number: US-BAYER-2018-006515

PATIENT
  Age: 7 Year
  Sex: Male
  Weight: 24 kg

DRUGS (3)
  1. MIRALAX [Suspect]
     Active Substance: POLYETHYLENE GLYCOL 3350
     Dosage: 1/2 A CAPFUL DOSE
     Route: 048
     Dates: start: 20180109, end: 20180109
  2. DIMETAPP DECONGESTANT PLUS COUGH INFANT [Concomitant]
     Dosage: UNK
  3. FLINTSTONES COMPLETE [Concomitant]

REACTIONS (3)
  - Drug administration error [Unknown]
  - Product use issue [Unknown]
  - Off label use [Unknown]

NARRATIVE: CASE EVENT DATE: 20180109
